FAERS Safety Report 12557059 (Version 1)
Quarter: 2016Q3

REPORT INFORMATION
  Report Type: Spontaneous
  Country: US (occurrence: US)
  Receive Date: 20160714
  Receipt Date: 20160714
  Transmission Date: 20161109
  Serious: Yes (Disabling)
  Sender: FDA-Public Use
  Company Number: US-ELI_LILLY_AND_COMPANY-US201607001588

PATIENT
  Sex: Male

DRUGS (3)
  1. CIALIS [Suspect]
     Active Substance: TADALAFIL
     Indication: PRODUCT USED FOR UNKNOWN INDICATION
     Dosage: UNK, UNKNOWN
     Route: 065
  2. VIEKIRAX [Interacting]
     Active Substance: OMBITASVIR\PARITAPREVIR\RITONAVIR
     Indication: INFECTION
     Dosage: UNK, UNKNOWN
     Route: 048
  3. RIBAVIRIN. [Suspect]
     Active Substance: RIBAVIRIN
     Indication: INFECTION
     Dosage: UNK, UNKNOWN
     Route: 048

REACTIONS (7)
  - Fatigue [Unknown]
  - Irritability [Unknown]
  - Nervousness [Unknown]
  - Myalgia [Unknown]
  - Drug interaction [Unknown]
  - Mood altered [Unknown]
  - Pain [Recovering/Resolving]
